FAERS Safety Report 8007507-9 (Version None)
Quarter: 2011Q4

REPORT INFORMATION
  Report Type: 
  Country: None (occurrence: None)
  Receive Date: 20111222
  Receipt Date: 20111222
  Transmission Date: 20120403
  Serious: No
  Sender: FDA-Public Use
  Company Number: None

PATIENT
  Sex: Male

DRUGS (3)
  1. INCIVEK [Concomitant]
  2. PEGASYS [Suspect]
     Dosage: PEGASYS 180MCG QWK SUBQ
     Route: 058
     Dates: start: 20111007
  3. RIBAVIRIN [Suspect]
     Dosage: RIBAVIRIN 600MG BID PO
     Route: 048
     Dates: start: 20111007

REACTIONS (5)
  - PRURITUS [None]
  - ARTHRALGIA [None]
  - CONDITION AGGRAVATED [None]
  - ANORECTAL DISCOMFORT [None]
  - HAEMORRHOIDS [None]
